FAERS Safety Report 11962339 (Version 2)
Quarter: 2016Q1

REPORT INFORMATION
  Report Type: Spontaneous
  Country: CA (occurrence: CA)
  Receive Date: 20160126
  Receipt Date: 20160210
  Transmission Date: 20160526
  Serious: Yes (Death, Other)
  Sender: FDA-Public Use
  Company Number: CA-ROCHE-1700115

PATIENT
  Sex: Female

DRUGS (2)
  1. PREDNISONE. [Concomitant]
     Active Substance: PREDNISONE
  2. RITUXAN [Suspect]
     Active Substance: RITUXIMAB
     Indication: LEUKAEMIA
     Dosage: DOSE, FREQUENCY, AND START AND STOP DATES- UNKNOWN?5 TREATMENTS IN CONJUNCTION WITH CHEMO
     Route: 042
     Dates: start: 2012

REACTIONS (3)
  - Hypertension [Unknown]
  - Immune thrombocytopenic purpura [Not Recovered/Not Resolved]
  - Death [Fatal]
